FAERS Safety Report 6709031-X (Version None)
Quarter: 2010Q2

REPORT INFORMATION
  Report Type: 
  Country: None (occurrence: None)
  Receive Date: 20100429
  Receipt Date: 20100414
  Transmission Date: 20101027
  Serious: Yes (Other)
  Sender: FDA-Public Use
  Company Number: DSA_43025_2010

PATIENT
  Age: 56 Year
  Sex: Male

DRUGS (4)
  1. TETRABENAZINE (TETRABENZAPINE)            37.5 MG [Suspect]
     Indication: DYSKINESIA
     Dosage: (37.5 MG TID)
  2. HALOPERIDOL (HALOPERIDOL) 3 MG [Suspect]
     Indication: DRUG USE FOR UNKNOWN INDICATION
     Dosage: (3 MG TID)
  3. ORPHENADRINE (ORPHENADRINE) 50 MG [Suspect]
     Indication: DRUG USE FOR UNKNOWN INDICATION
     Dosage: (50 MG TID)
  4. BOTULINUM TOXIN TYPE A (BOTULINUM TOXIN TYPE A) 500 DF [Suspect]
     Indication: DRUG USE FOR UNKNOWN INDICATION
     Dosage: (500 DF)

REACTIONS (9)
  - ACTIVITIES OF DAILY LIVING IMPAIRED [None]
  - BALLISMUS [None]
  - DYSKINESIA [None]
  - DYSTONIA [None]
  - GAIT DISTURBANCE [None]
  - INJURY [None]
  - MOVEMENT DISORDER [None]
  - NO THERAPEUTIC RESPONSE [None]
  - POSTURING [None]
